FAERS Safety Report 4903503-6 (Version None)
Quarter: 2006Q1

REPORT INFORMATION
  Report Type: 
  Country: None (occurrence: None)
  Receive Date: 20060203
  Receipt Date: 20060127
  Transmission Date: 20060701
  Serious: Yes (Life-Threatening)
  Sender: FDA-Public Use
  Company Number: 200610043BYL

PATIENT
  Age: 90 Year
  Sex: Female

DRUGS (4)
  1. ASPIRIN [Suspect]
     Indication: ANGINA PECTORIS
     Dosage: 100 MG, QD, ORAL; 100 MG, QD, ORAL
     Route: 048
     Dates: start: 20030502, end: 20030918
  2. ASPIRIN [Suspect]
     Indication: ANGINA PECTORIS
     Dosage: 100 MG, QD, ORAL; 100 MG, QD, ORAL
     Route: 048
     Dates: start: 20040217, end: 20050412
  3. BUFFERIN [Concomitant]
  4. NIVADIL [Concomitant]

REACTIONS (3)
  - AORTIC ANEURYSM [None]
  - CEREBRAL HAEMORRHAGE TRAUMATIC [None]
  - SUBARACHNOID HAEMORRHAGE [None]
